FAERS Safety Report 12288228 (Version 1)
Quarter: 2016Q2

REPORT INFORMATION
  Report Type: Spontaneous
  Country: IT (occurrence: IT)
  Receive Date: 20160420
  Receipt Date: 20160420
  Transmission Date: 20160815
  Serious: Yes (Death)
  Sender: FDA-Public Use
  Company Number: IT-SA-2016SA078721

PATIENT
  Age: 58 Year
  Sex: Male

DRUGS (1)
  1. CLEXANE [Suspect]
     Active Substance: ENOXAPARIN SODIUM
     Route: 051

REACTIONS (2)
  - Medication error [Unknown]
  - Death [Fatal]

NARRATIVE: CASE EVENT DATE: 20090302
